FAERS Safety Report 6759076-9 (Version None)
Quarter: 2010Q2

REPORT INFORMATION
  Report Type: 
  Country: None (occurrence: None)
  Receive Date: 20100603
  Receipt Date: 20100524
  Transmission Date: 20101027
  Serious: Yes (Hospitalization)
  Sender: FDA-Public Use
  Company Number: 2010AL003054

PATIENT
  Age: 8 Week
  Sex: Male

DRUGS (1)
  1. TRAMADOL HCL [Suspect]
     Dosage: PO
     Route: 048

REACTIONS (14)
  - CLONUS [None]
  - CONVULSION [None]
  - DEPRESSED LEVEL OF CONSCIOUSNESS [None]
  - DRUG SCREEN POSITIVE [None]
  - DYSKINESIA [None]
  - DYSTONIA [None]
  - GRUNTING [None]
  - MASTICATION DISORDER [None]
  - MUSCULOSKELETAL STIFFNESS [None]
  - OVERDOSE [None]
  - POSTURE ABNORMAL [None]
  - PUPILLARY REFLEX IMPAIRED [None]
  - RESPIRATORY ACIDOSIS [None]
  - UNEVALUABLE EVENT [None]
